FAERS Safety Report 4937084-8 (Version None)
Quarter: 2006Q1

REPORT INFORMATION
  Report Type: 
  Country: None (occurrence: None)
  Receive Date: 20060307
  Receipt Date: 20060307
  Transmission Date: 20060701
  Serious: Yes (Hospitalization)
  Sender: FDA-Public Use
  Company Number: None

PATIENT
  Age: 77 Year
  Weight: 97 kg

DRUGS (9)
  1. DICLOXACILLIN [Suspect]
     Indication: CELLULITIS
     Dates: start: 20051116, end: 20051130
  2. ALLOPURINOL [Concomitant]
  3. BETAXOLOL [Concomitant]
  4. COMBIVENT [Concomitant]
  5. LASIX [Concomitant]
  6. LISINOPRIL [Concomitant]
  7. WARFARIN [Concomitant]
  8. QUINNE [Concomitant]
  9. ASPIRIN [Concomitant]

REACTIONS (9)
  - ATRIAL FIBRILLATION [None]
  - DIARRHOEA [None]
  - DYSPNOEA [None]
  - ERYTHEMA [None]
  - FATIGUE [None]
  - NEPHRITIS INTERSTITIAL [None]
  - PURPURA [None]
  - SKIN DISORDER [None]
  - SKIN LESION [None]
